FAERS Safety Report 5190531-1 (Version None)
Quarter: 2006Q4

REPORT INFORMATION
  Report Type: 
  Country: None (occurrence: None)
  Receive Date: 20061222
  Receipt Date: 20061221
  Transmission Date: 20070319
  Serious: Yes (Other)
  Sender: FDA-Public Use
  Company Number: US-GLAXOSMITHKLINE-A0632421A

PATIENT
  Age: 28 Year
  Sex: Male

DRUGS (4)
  1. BC ARTHRITIS STRENGTH POWDER [Suspect]
     Indication: ILL-DEFINED DISORDER
     Route: 048
  2. BC HEADACHE POWDER [Suspect]
     Indication: ILL-DEFINED DISORDER
     Route: 048
  3. CYMBALTA [Concomitant]
  4. KLONOPIN [Concomitant]

REACTIONS (4)
  - DEPENDENCE [None]
  - NERVOUSNESS [None]
  - TOOTHACHE [None]
  - TREMOR [None]
